FAERS Safety Report 6607612-5 (Version None)
Quarter: 2010Q1

REPORT INFORMATION
  Report Type: 
  Country: None (occurrence: None)
  Receive Date: 20100301
  Receipt Date: 20100225
  Transmission Date: 20100710
  Serious: Yes (Disabling)
  Sender: FDA-Public Use
  Company Number: ES-WYE-G05641510

PATIENT
  Age: 62 Year
  Sex: Female
  Weight: 83 kg

DRUGS (6)
  1. TORISEL [Suspect]
     Indication: RENAL CANCER
     Dosage: 25 MG EVERY 1 CYC
     Route: 042
     Dates: start: 20090904, end: 20090925
  2. OMEPRAZOLE [Concomitant]
     Dosage: UNKNOWN
  3. LESCOL [Concomitant]
     Dosage: UNKNOWN
  4. PARACETAMOL [Concomitant]
     Dosage: UNKNOWN
  5. TERTENSIF [Concomitant]
     Route: 048
  6. CELEBREX [Concomitant]
     Dosage: UNKNOWN

REACTIONS (1)
  - RETINAL DETACHMENT [None]
